FAERS Safety Report 25179236 (Version 1)
Quarter: 2025Q2

REPORT INFORMATION
  Report Type: Spontaneous
  Country: CH (occurrence: CH)
  Receive Date: 20250409
  Receipt Date: 20250409
  Transmission Date: 20250717
  Serious: Yes (Hospitalization, Other)
  Sender: PFIZER
  Company Number: None

PATIENT
  Age: 46 Year
  Sex: Female
  Weight: 63 kg

DRUGS (9)
  1. CYTARABINE [Suspect]
     Active Substance: CYTARABINE
     Indication: Acute myeloid leukaemia
     Dosage: 1750 MG, 1X/DAY
     Route: 042
     Dates: start: 20040123, end: 20040127
  2. IDARUBICIN [Suspect]
     Active Substance: IDARUBICIN
     Dosage: 21 MG, 1X/DAY
     Route: 042
     Dates: start: 20040123, end: 20040125
  3. CLARITHROMYCIN [Suspect]
     Active Substance: CLARITHROMYCIN
     Indication: Campylobacter gastroenteritis
     Dosage: 1000 MG, DAILY
     Route: 048
     Dates: start: 20040119, end: 20040124
  4. HYDROXYUREA [Suspect]
     Active Substance: HYDROXYUREA
     Indication: Leukocytosis
     Dosage: 2 G, 1X/DAY
     Route: 048
     Dates: start: 20040121, end: 20040122
  5. ALLOPURINOL [Suspect]
     Active Substance: ALLOPURINOL
     Indication: Prophylaxis
     Dosage: 300 MG, 1X/DAY
     Route: 048
     Dates: start: 20040119, end: 20040201
  6. NADROPARIN CALCIUM [Concomitant]
     Active Substance: NADROPARIN CALCIUM
     Indication: Thrombosis prophylaxis
     Dosage: 0.3 ML, 1X/DAY
     Route: 058
     Dates: start: 20040125, end: 20040127
  7. NADROPARIN [Concomitant]
     Active Substance: NADROPARIN
     Indication: Thrombosis prophylaxis
     Dosage: 3 ML, DAILY
     Route: 058
     Dates: start: 20040123, end: 20040127
  8. ZOFRAN [Concomitant]
     Active Substance: ONDANSETRON HYDROCHLORIDE
     Indication: Nausea
     Dosage: 8 MG, 1X/DAY
     Route: 042
     Dates: start: 20040123, end: 20040130
  9. APHENYLBARBIT [PHENOBARBITAL] [Concomitant]
     Dosage: 50 MG, 1X/DAY
     Route: 048
     Dates: end: 20040122

REACTIONS (3)
  - Dermatitis bullous [Not Recovered/Not Resolved]
  - Rash erythematous [Not Recovered/Not Resolved]
  - Rash macular [Recovering/Resolving]

NARRATIVE: CASE EVENT DATE: 20040125
